FAERS Safety Report 22371463 (Version 7)
Quarter: 2025Q2

REPORT INFORMATION
  Report Type: Spontaneous
  Country: US (occurrence: US)
  Receive Date: 20230526
  Receipt Date: 20250610
  Transmission Date: 20250716
  Serious: No
  Sender: SANOFI AVENTIS
  Company Number: US-SA-SAC20220222001684

PATIENT
  Age: 64 Year
  Sex: Female

DRUGS (3)
  1. KEVZARA [Suspect]
     Active Substance: SARILUMAB
     Indication: Osteoarthritis
     Dosage: 200 MG, QOW
     Route: 058
     Dates: start: 202110
  2. KEVZARA [Suspect]
     Active Substance: SARILUMAB
     Indication: Rheumatoid arthritis
  3. KEVZARA [Suspect]
     Active Substance: SARILUMAB
     Indication: Polyarthritis

REACTIONS (10)
  - Pain [Unknown]
  - Skin ulcer [Unknown]
  - Joint swelling [Unknown]
  - Condition aggravated [Unknown]
  - Blister [Unknown]
  - Arthralgia [Unknown]
  - Injection site rash [Unknown]
  - Injection site pruritus [Unknown]
  - Product use in unapproved indication [Unknown]
  - Drug ineffective [Unknown]

NARRATIVE: CASE EVENT DATE: 20211001
